FAERS Safety Report 10733558 (Version 1)
Quarter: 2015Q1

REPORT INFORMATION
  Report Type: Spontaneous
  Country: US (occurrence: None)
  Receive Date: 20150120
  Receipt Date: 20150120
  Transmission Date: 20150721
  Serious: Yes (Life-Threatening)
  Sender: FDA-Public Use
  Company Number: US-H14001-15-00031

PATIENT
  Age: 37 Year
  Sex: Male

DRUGS (1)
  1. HEPARIN [Suspect]
     Active Substance: HEPARIN SODIUM
     Indication: PULMONARY EMBOLISM
     Dosage: UNKNOWN STOPPED

REACTIONS (6)
  - Continuous haemodiafiltration [None]
  - Multi-organ failure [None]
  - Antiphospholipid syndrome [None]
  - Acute kidney injury [None]
  - Heparin-induced thrombocytopenia [None]
  - Liver injury [None]
